FAERS Safety Report 6571002-4 (Version None)
Quarter: 2010Q1

REPORT INFORMATION
  Report Type: 
  Country: None (occurrence: None)
  Receive Date: 20100203
  Receipt Date: 20100203
  Transmission Date: 20100710
  Serious: No
  Sender: FDA-Public Use
  Company Number: None

PATIENT
  Age: 52 Year
  Sex: Female
  Weight: 68.0396 kg

DRUGS (1)
  1. BONIVA [Suspect]
     Indication: OSTEOPENIA
     Dosage: 1 150 MG TABLET ONCE A MONTH
     Dates: start: 20100201, end: 20100201

REACTIONS (4)
  - HEADACHE [None]
  - INSOMNIA [None]
  - MYALGIA [None]
  - PYREXIA [None]
